FAERS Safety Report 24132030 (Version 2)
Quarter: 2024Q4

REPORT INFORMATION
  Report Type: Spontaneous
  Country: FR (occurrence: FR)
  Receive Date: 20240724
  Receipt Date: 20241120
  Transmission Date: 20250115
  Serious: Yes (Hospitalization)
  Sender: PFIZER
  Company Number: FR-ROCHE-3565785

PATIENT
  Age: 82 Year
  Sex: Male
  Weight: 58 kg

DRUGS (25)
  1. BEVACIZUMAB [Suspect]
     Active Substance: BEVACIZUMAB
     Indication: Hepatocellular carcinoma
     Dosage: 865 MG, EVERY 3 WEEKS
     Route: 042
     Dates: start: 20240229, end: 2024
  2. TIRAGOLUMAB [Suspect]
     Active Substance: TIRAGOLUMAB
     Indication: Hepatocellular carcinoma
     Dosage: UNK
     Route: 042
  3. TIRAGOLUMAB [Suspect]
     Active Substance: TIRAGOLUMAB
     Dosage: UNK
     Route: 042
     Dates: start: 20240229
  4. ATEZOLIZUMAB [Suspect]
     Active Substance: ATEZOLIZUMAB
     Indication: Hepatocellular carcinoma
     Dosage: 1200 MG, EVERY 3 WEEKS
     Route: 042
     Dates: start: 20240229, end: 2024
  5. BRINZOLAMIDE [Concomitant]
     Active Substance: BRINZOLAMIDE
     Indication: Glaucoma
     Dosage: UNK, 4X/DAY
     Route: 047
     Dates: start: 2022, end: 20240522
  6. SKENAN [Concomitant]
     Active Substance: MORPHINE SULFATE
     Indication: Cancer pain
     Dosage: 30 MG, FREQ:.5 D;
     Route: 048
     Dates: start: 20240112, end: 20240602
  7. LYRICA [Concomitant]
     Active Substance: PREGABALIN
     Indication: Diabetic neuropathy
     Dosage: 150 MG, 1X/DAY
     Route: 048
     Dates: start: 2018, end: 20240529
  8. AMLODIPINE [Concomitant]
     Active Substance: AMLODIPINE BESYLATE
     Indication: Hypertension
     Dosage: 5 MG, FREQ:0.5 D;
     Route: 048
     Dates: start: 20240229, end: 20240229
  9. AMLODIPINE [Concomitant]
     Active Substance: AMLODIPINE BESYLATE
     Dosage: 10 MG, 1X/DAY
     Dates: start: 20240322, end: 20240531
  10. VALSARTAN [Concomitant]
     Active Substance: VALSARTAN
     Indication: Hypertension
     Dosage: 160 MG, 1X/DAY
     Route: 048
     Dates: start: 2017, end: 20240530
  11. JANUVIA [Concomitant]
     Active Substance: SITAGLIPTIN PHOSPHATE
     Indication: Diabetes mellitus
     Dosage: 100 MG, 1X/DAY
     Route: 048
     Dates: start: 2022, end: 20240522
  12. BIMATOPROST\TIMOLOL [Concomitant]
     Active Substance: BIMATOPROST\TIMOLOL
     Indication: Glaucoma
     Dosage: 1 OTHER
     Route: 047
     Dates: start: 2022, end: 20240522
  13. GLIMEPIRIDE [Concomitant]
     Active Substance: GLIMEPIRIDE
     Indication: Diabetes mellitus
     Dosage: 6 MG, 1X/DAY
     Route: 049
     Dates: start: 2023, end: 20240522
  14. MORPHINE SULFATE [Concomitant]
     Active Substance: MORPHINE SULFATE
     Indication: Cancer pain
     Dosage: FREQUENCY : 0.33D
     Route: 048
     Dates: start: 202312, end: 20240603
  15. HYALURONATE SODIUM\TREHALOSE [Concomitant]
     Active Substance: HYALURONATE SODIUM\TREHALOSE
     Indication: Glaucoma
     Dosage: 1 OTHER (LIQUID)
     Route: 047
     Dates: start: 2022, end: 20240522
  16. LANTUS [Concomitant]
     Active Substance: INSULIN GLARGINE
     Indication: Diabetes mellitus
     Dosage: 30 IU, 1X/DAY
     Route: 058
     Dates: start: 2004, end: 20240522
  17. DAPAGLIFLOZIN [Concomitant]
     Active Substance: DAPAGLIFLOZIN
     Indication: Diabetes mellitus
     Dosage: 10 MG, 1X/DAY
     Route: 048
     Dates: start: 2023, end: 20240522
  18. KARDEGIC [Concomitant]
     Active Substance: ASPIRIN DL-LYSINE
     Indication: Arteriosclerosis
     Dosage: 75 MG, 1X/DAY
     Route: 048
     Dates: start: 2012, end: 20240603
  19. HYDROCHLOROTHIAZIDE\VALSARTAN [Concomitant]
     Active Substance: HYDROCHLOROTHIAZIDE\VALSARTAN
     Dosage: 160 MG, 1X/DAY
     Route: 048
     Dates: start: 20240221, end: 20240221
  20. CARVEDILOL [Concomitant]
     Active Substance: CARVEDILOL
     Indication: Portal hypertension
     Dosage: 6.25 MG, FREQ:.5 D;
     Route: 048
     Dates: start: 20240209, end: 20240531
  21. NOVORAPID [Concomitant]
     Active Substance: INSULIN ASPART
     Indication: Diabetes mellitus
     Dosage: AS NECESSARY
     Route: 058
     Dates: start: 20240522, end: 20240603
  22. MORPHINE HYDROCHLORIDE [Concomitant]
     Active Substance: MORPHINE HYDROCHLORIDE
     Indication: Pain
     Dosage: 3 MG, AS NECESSARY
     Route: 042
     Dates: start: 20240522, end: 20240523
  23. MORPHINE HYDROCHLORIDE [Concomitant]
     Active Substance: MORPHINE HYDROCHLORIDE
     Dosage: 2 MG, AS NECESSARY
     Route: 042
     Dates: start: 20240530, end: 20240603
  24. MORPHINE HYDROCHLORIDE [Concomitant]
     Active Substance: MORPHINE HYDROCHLORIDE
     Dosage: 24 MG, 1X/DAY
     Route: 042
     Dates: start: 20240531, end: 20240602
  25. MORPHINE HYDROCHLORIDE [Concomitant]
     Active Substance: MORPHINE HYDROCHLORIDE
     Dosage: 36 MG, 1X/DAY
     Route: 042
     Dates: start: 20240603, end: 20240603

REACTIONS (6)
  - Osteolysis [Not Recovered/Not Resolved]
  - Infusion related reaction [Recovered/Resolved]
  - Blood glucose increased [Unknown]
  - Haematocrit decreased [Unknown]
  - Lymphocyte count decreased [Unknown]
  - Off label use [Unknown]

NARRATIVE: CASE EVENT DATE: 20240229
